FAERS Safety Report 24863609 (Version 1)
Quarter: 2025Q1

REPORT INFORMATION
  Report Type: Spontaneous
  Country: US (occurrence: US)
  Receive Date: 20250120
  Receipt Date: 20250120
  Transmission Date: 20250408
  Serious: No
  Sender: Phathom Pharmaceuticals
  Company Number: US-PHATHOM PHARMACEUTICALS INC.-2024PHT01545

PATIENT
  Sex: Female

DRUGS (14)
  1. VOQUEZNA [Suspect]
     Active Substance: VONOPRAZAN FUMARATE
     Indication: Gastrooesophageal reflux disease
     Dosage: 20 MG, 1X/DAY
     Route: 048
     Dates: start: 20241115
  2. PANTOPRAZOLE [Suspect]
     Active Substance: PANTOPRAZOLE
     Dosage: UNK, 2X/DAY
  3. MAGNESIUM [Suspect]
     Active Substance: MAGNESIUM
  4. MAGNESIUM [Suspect]
     Active Substance: MAGNESIUM
  5. CALCIUM [Suspect]
     Active Substance: CALCIUM
  6. CALCIUM [Suspect]
     Active Substance: CALCIUM
  7. MONTELUKAST [Concomitant]
     Active Substance: MONTELUKAST
  8. DULOXETINE [Concomitant]
     Active Substance: DULOXETINE
  9. AMLODIPINE [Concomitant]
     Active Substance: AMLODIPINE BESYLATE
  10. ESTRADIOL [Concomitant]
     Active Substance: ESTRADIOL
  11. BETHANECHOL [Concomitant]
     Active Substance: BETHANECHOL
  12. MISOPROSTOL [Concomitant]
     Active Substance: MISOPROSTOL
  13. MELOXICAM [Concomitant]
     Active Substance: MELOXICAM
  14. ARMOUR THYROID [Concomitant]
     Active Substance: THYROID, PORCINE

REACTIONS (1)
  - Muscle spasms [Unknown]

NARRATIVE: CASE EVENT DATE: 20240101
